FAERS Safety Report 19716521 (Version 1)
Quarter: 2021Q3

REPORT INFORMATION
  Report Type: Spontaneous
  Country: DE (occurrence: DE)
  Receive Date: 20210819
  Receipt Date: 20210819
  Transmission Date: 20211014
  Serious: Yes (Hospitalization)
  Sender: FDA-Public Use
  Company Number: DE-SUN PHARMACEUTICAL INDUSTRIES LTD-2021RR-308381

PATIENT
  Age: 79 Year
  Sex: Female

DRUGS (3)
  1. DONEPEZIL. [Suspect]
     Active Substance: DONEPEZIL
     Indication: PRODUCT USED FOR UNKNOWN INDICATION
     Dosage: 10 MILLIGRAM, DAILY,10 MG, 1?0?0?0, TABLETS
     Route: 048
  2. LEVOTHYROXINE?NATRIUM [Concomitant]
     Indication: PRODUCT USED FOR UNKNOWN INDICATION
     Dosage: 75 MICROGRAM, DAILY, 75 MICROGRAM, 1?0?0?0, TABLET
     Route: 048
  3. BISOPROLOL [Concomitant]
     Active Substance: BISOPROLOL
     Indication: PRODUCT USED FOR UNKNOWN INDICATION
     Dosage: 2.5 MILLIGRAM, DAILY, 2.5 MG, 1?0?0?0, TABLETS
     Route: 048

REACTIONS (3)
  - Vomiting [Unknown]
  - Abdominal pain lower [Unknown]
  - Hypertension [Unknown]
